FAERS Safety Report 20860944 (Version 1)
Quarter: 2022Q2

REPORT INFORMATION
  Report Type: Spontaneous
  Country: US (occurrence: None)
  Receive Date: 20220522
  Receipt Date: 20220522
  Transmission Date: 20220721
  Serious: No
  Sender: FDA-Public Use
  Company Number: None

PATIENT
  Age: 62 Year
  Sex: Female
  Weight: 51.75 kg

DRUGS (1)
  1. PAXLOVID [Suspect]
     Active Substance: NIRMATRELVIR\RITONAVIR
     Indication: COVID-19
     Dosage: OTHER QUANTITY : 1 PACKET OF 3 PILLS;?FREQUENCY : TWICE A DAY;?
     Route: 048
     Dates: start: 20220509, end: 20220514

REACTIONS (7)
  - Drug interaction [None]
  - Disturbance in attention [None]
  - Dissociation [None]
  - Aggression [None]
  - Insomnia [None]
  - Night sweats [None]
  - Nightmare [None]

NARRATIVE: CASE EVENT DATE: 20220511
